FAERS Safety Report 12319256 (Version 2)
Quarter: 2016Q3

REPORT INFORMATION
  Report Type: Report from Study
  Country: BR (occurrence: BR)
  Receive Date: 20160429
  Receipt Date: 20160711
  Transmission Date: 20161109
  Serious: Yes (Other)
  Sender: FDA-Public Use
  Company Number: BR-REGENERON PHARMACEUTICALS, INC.-2016-16179

PATIENT

DRUGS (2)
  1. EYLEA [Suspect]
     Active Substance: AFLIBERCEPT
     Indication: NEOVASCULAR AGE-RELATED MACULAR DEGENERATION
     Dosage: UNK
     Route: 031
     Dates: start: 201508
  2. RANITIDINE HYDROCHLORIDE. [Concomitant]
     Active Substance: RANITIDINE HYDROCHLORIDE
     Indication: GASTROOESOPHAGEAL REFLUX DISEASE
     Dosage: 1 DF, HS
     Route: 048
     Dates: start: 1986

REACTIONS (2)
  - Neovascular age-related macular degeneration [Recovering/Resolving]
  - Product use issue [Unknown]

NARRATIVE: CASE EVENT DATE: 201602
